FAERS Safety Report 6526849-7 (Version None)
Quarter: 2010Q1

REPORT INFORMATION
  Report Type: 
  Country: None (occurrence: None)
  Receive Date: 20100105
  Receipt Date: 20091229
  Transmission Date: 20100710
  Serious: Yes (Hospitalization)
  Sender: FDA-Public Use
  Company Number: DE-ASTRAZENECA-2009SE33832

PATIENT
  Age: 70 Year
  Sex: Female
  Weight: 82 kg

DRUGS (11)
  1. OMEPRAZOLE [Interacting]
     Indication: PROPHYLAXIS AGAINST GASTROINTESTINAL ULCER
     Route: 048
  2. DICLOFENAC SODIUM [Interacting]
     Indication: BONE PAIN
     Route: 048
     Dates: end: 20091019
  3. UNACID PD ORAL [Suspect]
     Indication: ANTIBIOTIC PROPHYLAXIS
     Route: 048
     Dates: start: 20090825, end: 20090827
  4. CLINDAMYCIN HCL [Suspect]
     Indication: PROPHYLAXIS
     Route: 048
     Dates: start: 20090828, end: 20090907
  5. MANINIL [Concomitant]
     Indication: TYPE 2 DIABETES MELLITUS
     Route: 048
     Dates: end: 20091014
  6. FELODIPINE [Concomitant]
     Indication: HYPERTENSION
     Route: 048
  7. TORSEMIDE [Concomitant]
     Indication: HYPERTENSION
     Route: 048
  8. DOXAGAMMA 8 [Concomitant]
     Indication: HYPERTENSION
     Route: 048
  9. SIMVASTATIN [Concomitant]
     Indication: HYPERLIPIDAEMIA
     Route: 048
  10. ALLOPURINOL [Concomitant]
     Route: 048
  11. DIOVAN 160 MG FILMTABLETTEN [Concomitant]
     Indication: HYPERTENSION
     Route: 048

REACTIONS (1)
  - PSEUDOMEMBRANOUS COLITIS [None]
